FAERS Safety Report 9600366 (Version 1)
Quarter: 2013Q4

REPORT INFORMATION
  Report Type: Spontaneous
  Country: US (occurrence: US)
  Receive Date: 20131004
  Receipt Date: 20131004
  Transmission Date: 20140711
  Serious: No
  Sender: FDA-Public Use
  Company Number: US-AMGEN-USASP2013034115

PATIENT
  Age: 61 Year
  Sex: Female
  Weight: 74.83 kg

DRUGS (13)
  1. ENBREL [Suspect]
     Indication: PRODUCT USED FOR UNKNOWN INDICATION
     Dosage: 50 MG, QWK
     Route: 058
  2. MOBIC [Concomitant]
     Dosage: 15 MG, UNK
  3. CLARITIN                           /00413701/ [Concomitant]
     Dosage: 10 MG, UNK
  4. VITAMIN D                          /00107901/ [Concomitant]
     Dosage: 2000 UNIT, UNK
  5. FISH OIL [Concomitant]
  6. MULTIVITAMINS, PLAIN [Concomitant]
     Dosage: UNK
  7. BORAGE OIL [Concomitant]
     Dosage: 1000 MG, UNK
  8. CALCIUM [Concomitant]
     Dosage: UNK 500
  9. ADRENAL [Concomitant]
     Dosage: 200 MG, UNK
  10. GLUCO + CHONDROITIN [Concomitant]
     Dosage: UNK
  11. MSM [Concomitant]
     Dosage: UNK
  12. CO Q 10                            /00517201/ [Concomitant]
     Dosage: UNK
  13. OMEGA-3                            /01866101/ [Concomitant]
     Dosage: UNK

REACTIONS (3)
  - Arthritis [Unknown]
  - Cartilage injury [Unknown]
  - Injection site urticaria [Recovered/Resolved]
